FAERS Safety Report 10484651 (Version 1)
Quarter: 2014Q3

REPORT INFORMATION
  Report Type: Spontaneous
  Country: US (occurrence: US)
  Receive Date: 20140930
  Receipt Date: 20140930
  Transmission Date: 20150326
  Serious: Yes (Other)
  Sender: FDA-Public Use
  Company Number: CHPA2014US013018

PATIENT
  Age: 52 Year
  Sex: Female

DRUGS (2)
  1. THERAFLU FLU AND CHEST CONGESTION [Suspect]
     Active Substance: ACETAMINOPHEN\GUAIFENESIN
     Indication: RESPIRATORY TRACT CONGESTION
  2. THERAFLU FLU AND CHEST CONGESTION [Suspect]
     Active Substance: ACETAMINOPHEN\GUAIFENESIN
     Indication: INFLUENZA
     Dosage: UNK
     Route: 048

REACTIONS (4)
  - Paraesthesia [Recovered/Resolved]
  - Hypoaesthesia [Recovered/Resolved]
  - Headache [Recovered/Resolved]
  - Coeliac disease [Unknown]

NARRATIVE: CASE EVENT DATE: 201406
